FAERS Safety Report 13674425 (Version 1)
Quarter: 2017Q2

REPORT INFORMATION
  Report Type: Spontaneous
  Country: FR (occurrence: FR)
  Receive Date: 20170621
  Receipt Date: 20170621
  Transmission Date: 20170830
  Serious: Yes (Other)
  Sender: FDA-Public Use
  Company Number: FR-BAYER-2017-118913

PATIENT
  Sex: Female

DRUGS (1)
  1. MIRENA [Suspect]
     Active Substance: LEVONORGESTREL
     Indication: CONTRACEPTION
     Dosage: 20 MCG/24HR, CONT
     Route: 015

REACTIONS (11)
  - Uterine hypertonus [Recovered/Resolved]
  - Anxiety [Recovered/Resolved]
  - Irritability [Recovered/Resolved]
  - Fatigue [Recovered/Resolved]
  - Weight decreased [Recovered/Resolved]
  - Diffuse alopecia [Recovered/Resolved]
  - Vertigo [Recovered/Resolved]
  - Nausea [Recovered/Resolved]
  - Menometrorrhagia [Recovered/Resolved]
  - Crying [Recovered/Resolved]
  - Myalgia [Recovered/Resolved]
